FAERS Safety Report 12158067 (Version 1)
Quarter: 2016Q1

REPORT INFORMATION
  Report Type: Spontaneous
  Country: US (occurrence: US)
  Receive Date: 20160308
  Receipt Date: 20160308
  Transmission Date: 20160526
  Serious: No
  Sender: FDA-Public Use
  Company Number: US-JNJFOC-20141215577

PATIENT
  Sex: Male

DRUGS (12)
  1. IMBRUVICA [Suspect]
     Active Substance: IBRUTINIB
     Indication: CHRONIC LYMPHOCYTIC LEUKAEMIA
     Route: 048
     Dates: start: 201501
  2. BARACLUDE [Concomitant]
     Active Substance: ENTECAVIR
  3. LANTUS [Concomitant]
     Active Substance: INSULIN GLARGINE
  4. METFORMIN [Concomitant]
     Active Substance: METFORMIN HYDROCHLORIDE
  5. OMEPRAZOLE. [Concomitant]
     Active Substance: OMEPRAZOLE
  6. GLYBURIDE. [Concomitant]
     Active Substance: GLYBURIDE
  7. IMBRUVICA [Suspect]
     Active Substance: IBRUTINIB
     Indication: CHRONIC LYMPHOCYTIC LEUKAEMIA
     Route: 048
     Dates: start: 201406, end: 201412
  8. FLUCONAZOLE. [Interacting]
     Active Substance: FLUCONAZOLE
     Indication: CANDIDA INFECTION
     Dates: start: 2014, end: 2014
  9. NYSTATIN. [Concomitant]
     Active Substance: NYSTATIN
  10. SIMVASTATIN. [Concomitant]
     Active Substance: SIMVASTATIN
  11. ACTOS [Concomitant]
     Active Substance: PIOGLITAZONE HYDROCHLORIDE
  12. BACTRIM [Concomitant]
     Active Substance: SULFAMETHOXAZOLE\TRIMETHOPRIM

REACTIONS (5)
  - Neutrophil count decreased [Recovering/Resolving]
  - Nocardiosis [Recovering/Resolving]
  - Drug interaction [Recovering/Resolving]
  - Fungal infection [Recovered/Resolved]
  - White blood cell count decreased [Recovering/Resolving]

NARRATIVE: CASE EVENT DATE: 2014
